FAERS Safety Report 21396338 (Version 4)
Quarter: 2023Q4

REPORT INFORMATION
  Report Type: Spontaneous
  Country: US (occurrence: US)
  Receive Date: 20220930
  Receipt Date: 20231130
  Transmission Date: 20240110
  Serious: Yes (Other)
  Sender: FDA-Public Use
  Company Number: US-BAYER-2022A131400

PATIENT
  Age: 35 Year
  Sex: Female
  Weight: 112.47 kg

DRUGS (1)
  1. MIRENA [Suspect]
     Active Substance: LEVONORGESTREL
     Dosage: 20?G/DAY
     Route: 015
     Dates: start: 20210929, end: 20220919

REACTIONS (4)
  - Pregnancy with contraceptive device [None]
  - Drug ineffective [None]
  - Device expulsion [Recovered/Resolved]
  - Procedural pain [None]

NARRATIVE: CASE EVENT DATE: 20210929
